FAERS Safety Report 11948103 (Version 2)
Quarter: 2016Q1

REPORT INFORMATION
  Report Type: Spontaneous
  Country: US (occurrence: US)
  Receive Date: 20160125
  Receipt Date: 20160331
  Transmission Date: 20160526
  Serious: Yes (Hospitalization)
  Sender: FDA-Public Use
  Company Number: US-ASTRAZENECA-2016SE03649

PATIENT
  Age: 885 Month
  Sex: Male
  Weight: 115.7 kg

DRUGS (10)
  1. BRILINTA [Suspect]
     Active Substance: TICAGRELOR
     Indication: STENT PLACEMENT
     Route: 048
     Dates: start: 2013, end: 201511
  2. BRILINTA [Suspect]
     Active Substance: TICAGRELOR
     Indication: STENT PLACEMENT
     Route: 048
     Dates: start: 20151103
  3. GEMFIBROZIL. [Concomitant]
     Active Substance: GEMFIBROZIL
     Route: 048
  4. BRILINTA [Suspect]
     Active Substance: TICAGRELOR
     Indication: ACUTE CORONARY SYNDROME
     Route: 048
     Dates: start: 20151103
  5. METFORMIN [Concomitant]
     Active Substance: METFORMIN HYDROCHLORIDE
     Indication: TYPE 2 DIABETES MELLITUS
     Route: 048
     Dates: start: 2007
  6. OXYCODONE [Suspect]
     Active Substance: OXYCODONE
     Route: 065
  7. GLUCOPHAGE [Concomitant]
     Active Substance: METFORMIN HYDROCHLORIDE
     Dates: start: 201504
  8. BRILINTA [Suspect]
     Active Substance: TICAGRELOR
     Indication: ACUTE CORONARY SYNDROME
     Route: 048
     Dates: start: 2013, end: 201511
  9. ALLOPURINOL. [Concomitant]
     Active Substance: ALLOPURINOL
     Route: 048
     Dates: start: 2013
  10. BAYER BACK AND BODY EXTRA STRENGTH [Concomitant]
     Active Substance: ASPIRIN\CAFFEINE
     Indication: PAIN

REACTIONS (7)
  - Blood glucose decreased [Unknown]
  - Pain [Unknown]
  - Dizziness [Unknown]
  - Off label use [Unknown]
  - Thinking abnormal [Unknown]
  - Back pain [Unknown]
  - Weight decreased [Unknown]

NARRATIVE: CASE EVENT DATE: 201504
